FAERS Safety Report 6973797-4 (Version None)
Quarter: 2010Q3

REPORT INFORMATION
  Report Type: 
  Country: None (occurrence: None)
  Receive Date: 20100909
  Receipt Date: 20100903
  Transmission Date: 20110219
  Serious: Yes (Hospitalization)
  Sender: FDA-Public Use
  Company Number: A0879564A

PATIENT
  Age: 67 Year
  Sex: Female

DRUGS (4)
  1. ADVAIR DISKUS 100/50 [Suspect]
     Indication: ASTHMA
     Dosage: 1PUFF TWICE PER DAY
     Route: 055
     Dates: start: 20010101
  2. NASONEX [Concomitant]
  3. ALBUTEROL [Concomitant]
  4. NORVASC [Concomitant]

REACTIONS (5)
  - CATARACT [None]
  - DYSPNOEA [None]
  - INHALATION THERAPY [None]
  - PNEUMONIA [None]
  - VITREOUS FLOATERS [None]
